FAERS Safety Report 7598716-1 (Version None)
Quarter: 2011Q3

REPORT INFORMATION
  Report Type: 
  Country: None (occurrence: None)
  Receive Date: 20110711
  Receipt Date: 20110630
  Transmission Date: 20111222
  Serious: Yes (Hospitalization)
  Sender: FDA-Public Use
  Company Number: US-BIOGENIDEC-2011BI024556

PATIENT
  Age: 66 Year
  Sex: Female

DRUGS (1)
  1. AVONEX [Suspect]
     Indication: MULTIPLE SCLEROSIS
     Route: 030
     Dates: start: 20010402

REACTIONS (5)
  - POST PROCEDURAL COMPLICATION [None]
  - INFECTION [None]
  - DYSARTHRIA [None]
  - VISION BLURRED [None]
  - MUSCLE DISORDER [None]
